FAERS Safety Report 4813950-9 (Version None)
Quarter: 2005Q4

REPORT INFORMATION
  Report Type: 
  Country: None (occurrence: None)
  Receive Date: 20051028
  Receipt Date: 20041021
  Transmission Date: 20060501
  Serious: No
  Sender: FDA-Public Use
  Company Number: US-GLAXOSMITHKLINE-A0530792A

PATIENT
  Age: 63 Year
  Sex: Female

DRUGS (9)
  1. SEREVENT [Suspect]
     Indication: ASTHMA
     Dosage: 1PUFF TWICE PER DAY
     Route: 055
  2. AZMACORT [Concomitant]
  3. ALBUTEROL [Concomitant]
  4. TENORMIN [Concomitant]
  5. LOTENSIN [Concomitant]
  6. HYDROCHLOROTHIAZIDE [Concomitant]
  7. CELEXA [Concomitant]
  8. RANITIDINE [Concomitant]
  9. BUSPAR [Concomitant]

REACTIONS (2)
  - DYSPNOEA [None]
  - PHARMACEUTICAL PRODUCT COMPLAINT [None]
